FAERS Safety Report 23012023 (Version 3)
Quarter: 2023Q4

REPORT INFORMATION
  Report Type: Report from Study
  Country: US (occurrence: US)
  Receive Date: 20230929
  Receipt Date: 20231228
  Transmission Date: 20240110
  Serious: Yes (Other)
  Sender: FDA-Public Use
  Company Number: US-ABBVIE-5427665

PATIENT
  Sex: Female
  Weight: 77 kg

DRUGS (8)
  1. RINVOQ [Suspect]
     Active Substance: UPADACITINIB
     Indication: Rheumatoid arthritis
     Dosage: PILL
     Route: 048
     Dates: start: 20220814
  2. RINVOQ [Suspect]
     Active Substance: UPADACITINIB
     Indication: Rheumatoid arthritis
     Dosage: LAST ADMIN DATE AUG 2022
     Route: 048
     Dates: start: 20220801
  3. LEFLUNOMIDE [Concomitant]
     Active Substance: LEFLUNOMIDE
     Indication: Rheumatoid arthritis
     Dosage: PILL
     Dates: start: 20220301
  4. AMLODIPINE [Concomitant]
     Active Substance: AMLODIPINE BESYLATE
     Indication: Hypertension
     Dosage: PILL
     Dates: start: 20220101
  5. Caltrate 600+D3 Plus minerals [Concomitant]
     Indication: Mineral supplementation
     Dosage: PILL
     Dates: start: 20190101
  6. COLLAGEN [Concomitant]
     Active Substance: COLLAGEN
     Indication: Supplementation therapy
     Dates: start: 20190101
  7. COVID-19 vaccine [Concomitant]
     Indication: COVID-19 immunisation
     Dosage: ONCE
     Route: 030
     Dates: start: 20230912, end: 20230912
  8. INFLUENZA VIRUS VACCINE [Concomitant]
     Active Substance: INFLUENZA VIRUS VACCINE
     Indication: Influenza immunisation
     Dates: start: 20230912, end: 20230912

REACTIONS (9)
  - Vertigo [Recovered/Resolved]
  - Depression [Unknown]
  - Peripheral swelling [Recovering/Resolving]
  - Ear infection [Unknown]
  - Transient ischaemic attack [Unknown]
  - Dyspnoea [Unknown]
  - Depressed mood [Recovered/Resolved]
  - Arthralgia [Unknown]
  - Vertigo [Unknown]

NARRATIVE: CASE EVENT DATE: 20230101
